FAERS Safety Report 7041115-1 (Version None)
Quarter: 2010Q4

REPORT INFORMATION
  Report Type: 
  Country: None (occurrence: None)
  Receive Date: 20101013
  Receipt Date: 20100928
  Transmission Date: 20110411
  Serious: Yes (Life-Threatening, Hospitalization)
  Sender: FDA-Public Use
  Company Number: US-JNJFOC-20091102005

PATIENT
  Sex: Female
  Weight: 81.4 kg

DRUGS (55)
  1. GOLIMUMAB [Suspect]
     Indication: RHEUMATOID ARTHRITIS
     Route: 058
  2. GOLIMUMAB [Suspect]
     Route: 058
  3. GOLIMUMAB [Suspect]
     Route: 058
  4. GOLIMUMAB [Suspect]
     Route: 058
  5. GOLIMUMAB [Suspect]
     Route: 058
  6. GOLIMUMAB [Suspect]
     Route: 058
  7. GOLIMUMAB [Suspect]
     Route: 058
  8. GOLIMUMAB [Suspect]
     Route: 058
  9. GOLIMUMAB [Suspect]
     Route: 058
  10. GOLIMUMAB [Suspect]
     Route: 058
  11. GOLIMUMAB [Suspect]
     Route: 058
  12. GOLIMUMAB [Suspect]
     Route: 058
  13. GOLIMUMAB [Suspect]
     Route: 058
  14. GOLIMUMAB [Suspect]
     Route: 058
  15. GOLIMUMAB [Suspect]
     Route: 058
  16. GOLIMUMAB [Suspect]
     Route: 058
  17. GOLIMUMAB [Suspect]
     Route: 058
  18. GOLIMUMAB [Suspect]
     Route: 058
  19. GOLIMUMAB [Suspect]
     Route: 058
  20. GOLIMUMAB [Suspect]
     Route: 058
  21. GOLIMUMAB [Suspect]
     Route: 058
  22. GOLIMUMAB [Suspect]
     Route: 058
  23. GOLIMUMAB [Suspect]
     Route: 058
  24. GOLIMUMAB [Suspect]
     Route: 058
  25. GOLIMUMAB [Suspect]
     Route: 058
  26. GOLIMUMAB [Suspect]
     Route: 058
  27. GOLIMUMAB [Suspect]
     Route: 058
  28. GOLIMUMAB [Suspect]
     Route: 058
  29. GOLIMUMAB [Suspect]
     Route: 058
  30. GOLIMUMAB [Suspect]
     Route: 058
  31. GOLIMUMAB [Suspect]
     Route: 058
  32. GOLIMUMAB [Suspect]
     Route: 058
  33. GOLIMUMAB [Suspect]
     Route: 058
  34. GOLIMUMAB [Suspect]
     Route: 058
  35. GOLIMUMAB [Suspect]
     Route: 058
  36. GOLIMUMAB [Suspect]
     Route: 058
  37. GOLIMUMAB [Suspect]
     Route: 058
  38. GOLIMUMAB [Suspect]
     Route: 058
  39. GOLIMUMAB [Suspect]
     Route: 058
  40. PLACEBO [Suspect]
     Indication: RHEUMATOID ARTHRITIS
     Route: 058
  41. PLACEBO [Suspect]
     Route: 058
  42. PLACEBO [Suspect]
     Route: 058
  43. PLACEBO [Suspect]
     Route: 058
  44. PLACEBO [Suspect]
     Route: 058
  45. PLACEBO [Suspect]
     Route: 058
  46. ZOCOR [Concomitant]
     Route: 048
  47. ATENOLOL [Concomitant]
     Route: 048
  48. VERAPAMIL [Concomitant]
     Route: 048
  49. LORAZEPAM [Concomitant]
     Route: 048
  50. METHOTREXATE [Concomitant]
     Route: 048
  51. FOLIC ACID [Concomitant]
     Route: 048
  52. PRILOSEC [Concomitant]
     Route: 048
  53. ACTONEL [Concomitant]
     Route: 048
  54. PREDNISONE [Concomitant]
     Route: 048
  55. CELEBREX [Concomitant]
     Route: 048

REACTIONS (2)
  - COLOSTOMY CLOSURE [None]
  - LARGE INTESTINE PERFORATION [None]
